FAERS Safety Report 7985079-2 (Version None)
Quarter: 2011Q4

REPORT INFORMATION
  Report Type: 
  Country: None (occurrence: None)
  Receive Date: 20111216
  Receipt Date: 20111208
  Transmission Date: 20120403
  Serious: Yes (Other)
  Sender: FDA-Public Use
  Company Number: PHHY2009JP36203

PATIENT
  Sex: Male

DRUGS (8)
  1. PAMILCON [Concomitant]
     Dosage: 1.25 MG, UNK
  2. ALLOPURINOL [Concomitant]
     Indication: HYPERURICAEMIA
     Dosage: 200 MG, UNK
     Route: 048
     Dates: start: 20090418, end: 20090529
  3. TASIGNA [Suspect]
     Dosage: 200 MG PER DAY
     Route: 048
     Dates: start: 20090530, end: 20090708
  4. TASIGNA [Suspect]
     Dosage: 400 MG, DAILY
     Route: 048
     Dates: start: 20091022, end: 20101208
  5. GLUCOBAY [Concomitant]
     Indication: DIABETES MELLITUS
     Dosage: 300 MG, UNK
     Route: 048
     Dates: start: 20090530
  6. TASIGNA [Suspect]
     Dosage: 400 MG PER DAY
     Route: 048
     Dates: start: 20090709, end: 20090902
  7. TASIGNA [Suspect]
     Dosage: 600 MG, DAILY
     Dates: start: 20090903, end: 20090930
  8. TASIGNA [Suspect]
     Indication: CHRONIC MYELOID LEUKAEMIA
     Dosage: 400 MG PER DAY
     Route: 048
     Dates: start: 20090418, end: 20090515

REACTIONS (7)
  - ELECTROCARDIOGRAM QT PROLONGED [None]
  - GAMMA-GLUTAMYLTRANSFERASE INCREASED [None]
  - BLOOD LACTATE DEHYDROGENASE INCREASED [None]
  - PLATELET COUNT DECREASED [None]
  - ASPARTATE AMINOTRANSFERASE INCREASED [None]
  - BLOOD BILIRUBIN INCREASED [None]
  - BLOOD GLUCOSE INCREASED [None]
